FAERS Safety Report 12879570 (Version 3)
Quarter: 2016Q4

REPORT INFORMATION
  Report Type: Spontaneous
  Country: JP (occurrence: JP)
  Receive Date: 20161025
  Receipt Date: 20161107
  Transmission Date: 20170207
  Serious: Yes (Hospitalization, Other)
  Sender: FDA-Public Use
  Company Number: JP-PFIZER INC-2016405099

PATIENT
  Age: 47 Year
  Sex: Male
  Weight: 73 kg

DRUGS (30)
  1. CEFAZOLIN /00288502/ [Suspect]
     Active Substance: CEFAZOLIN SODIUM
     Indication: SURGERY
     Dosage: UNK
     Route: 041
     Dates: start: 20160713, end: 20160714
  2. ESLAX [Suspect]
     Active Substance: ROCURONIUM BROMIDE
     Dosage: UNK
     Route: 042
     Dates: start: 20160713
  3. CEFAZOLIN /00288502/ [Suspect]
     Active Substance: CEFAZOLIN SODIUM
     Dosage: UNK
     Route: 041
     Dates: start: 20160816
  4. DIPRIVAN [Concomitant]
     Active Substance: PROPOFOL
     Dosage: UNK
     Dates: start: 20160713, end: 20160719
  5. FENTANYL /00174602/ [Concomitant]
     Active Substance: FENTANYL
     Dosage: UNK
     Dates: start: 20160713, end: 20160713
  6. PROPOFOL. [Concomitant]
     Active Substance: PROPOFOL
     Dosage: UNK
     Dates: start: 20160713
  7. LASIX [Suspect]
     Active Substance: FUROSEMIDE
     Indication: HYPERTENSION
     Dosage: 1 DF, DAILY(QD)
     Route: 048
     Dates: start: 20160716, end: 20160817
  8. VASOLAN /00014302/ [Suspect]
     Active Substance: VERAPAMIL HYDROCHLORIDE
     Indication: TACHYCARDIA
     Dosage: 2 ML, DAILY (QD)
     Route: 050
     Dates: start: 20160720, end: 20160729
  9. BFLUID [Suspect]
     Active Substance: AMINO ACIDS\DEXTROSE\ELECTROLYTES NOS\VITAMINS
     Indication: NUTRITIONAL SUPPLEMENTATION
     Dosage: 500 ML, 2X/DAY
     Route: 050
     Dates: start: 20160715, end: 20160726
  10. ESLAX [Suspect]
     Active Substance: ROCURONIUM BROMIDE
     Indication: ANAESTHESIA PROCEDURE
     Dosage: UNK
     Route: 042
     Dates: start: 20130720
  11. SEVOFLURANE. [Concomitant]
     Active Substance: SEVOFLURANE
     Dosage: UNK
     Dates: start: 20160713, end: 20160713
  12. NICARDIPINE HYDROCHLORIDE. [Concomitant]
     Active Substance: NICARDIPINE HYDROCHLORIDE
     Dosage: UNK
     Dates: start: 20160714, end: 20160721
  13. AMLODIPINE BESILATE [Suspect]
     Active Substance: AMLODIPINE BESYLATE
     Indication: HYPERTENSION
     Dosage: 1 DF, DAILY (QD)
     Route: 048
     Dates: start: 20160714, end: 20160817
  14. MALFA [Suspect]
     Active Substance: ALUMINUM HYDROXIDE\MAGNESIUM HYDROXIDE
     Indication: GASTRIC ULCER
     Dosage: 14 ML, 3X/DAY
     Route: 048
     Dates: start: 20160716, end: 20160729
  15. MAINTATE [Suspect]
     Active Substance: BISOPROLOL FUMARATE
     Indication: TACHYCARDIA
     Dosage: 1 DF, DAILY (QD)
     Route: 048
     Dates: start: 20160714, end: 20160816
  16. ESLAX [Suspect]
     Active Substance: ROCURONIUM BROMIDE
     Dosage: UNK
     Route: 042
     Dates: start: 20130816
  17. LOXOPROFEN /00890702/ [Suspect]
     Active Substance: LOXOPROFEN
     Dosage: UNK
     Route: 048
     Dates: start: 20160717, end: 20160729
  18. ONOACT [Concomitant]
     Active Substance: LANDIOLOL HYDROCHLORIDE
     Dosage: UNK
     Dates: start: 20160713, end: 20160714
  19. BREVIBLOC [Concomitant]
     Active Substance: ESMOLOL HYDROCHLORIDE
     Dosage: UNK
     Dates: start: 20160713
  20. HERBAL NOS [Suspect]
     Active Substance: HERBALS
     Indication: GASTROINTESTINAL MOTILITY DISORDER
     Dosage: 2.5 G, 3X/DAY
     Route: 048
     Dates: start: 20160720, end: 20160728
  21. HERBAL NOS [Suspect]
     Active Substance: HERBALS
     Indication: CONSTIPATION
  22. LANSOPRAZOLE. [Suspect]
     Active Substance: LANSOPRAZOLE
     Dosage: 1 DF, DAILY (QD)
     Route: 048
     Dates: start: 20160721, end: 20160728
  23. LASIX [Suspect]
     Active Substance: FUROSEMIDE
     Indication: CARDIAC FAILURE
  24. CATABON [Concomitant]
     Active Substance: DOPAMINE HYDROCHLORIDE
     Dosage: UNK
     Dates: start: 20160713, end: 20160713
  25. NEOSYNESIN /00116302/ [Concomitant]
     Dosage: UNK
     Dates: start: 20160713
  26. ELIQUIS [Suspect]
     Active Substance: APIXABAN
     Indication: CEREBROVASCULAR ACCIDENT PROPHYLAXIS
     Dosage: UNK
  27. OLMETEC [Suspect]
     Active Substance: OLMESARTAN MEDOXOMIL
     Indication: HYPERTENSION
     Dosage: UNK, DAILY (QD)
     Route: 048
     Dates: start: 20160721, end: 20160728
  28. LANSOPRAZOLE. [Suspect]
     Active Substance: LANSOPRAZOLE
     Indication: GASTRIC ULCER
     Dosage: UNK
     Route: 065
     Dates: start: 20160714, end: 20160715
  29. ULTIVA [Concomitant]
     Active Substance: REMIFENTANIL HYDROCHLORIDE
     Dosage: UNK
     Dates: start: 20160713
  30. MAINTATE [Suspect]
     Active Substance: BISOPROLOL FUMARATE
     Dosage: 1DF, DAILY (QD)
     Route: 048
     Dates: start: 20160825

REACTIONS (6)
  - Disease recurrence [Recovering/Resolving]
  - Diarrhoea [Unknown]
  - Drug eruption [Recovering/Resolving]
  - Blood pressure decreased [Unknown]
  - Hepatic function abnormal [Recovering/Resolving]
  - Spinal operation [Unknown]

NARRATIVE: CASE EVENT DATE: 20160725
